FAERS Safety Report 9139760 (Version 2)
Quarter: 2013Q3

REPORT INFORMATION
  Report Type: Report from Study
  Country: CH (occurrence: CH)
  Receive Date: 20130305
  Receipt Date: 20130722
  Transmission Date: 20140515
  Serious: Yes (Death, Hospitalization, Other)
  Sender: FDA-Public Use
  Company Number: CH-JNJFOC-20130213273

PATIENT
  Age: 64 Year
  Sex: Male

DRUGS (9)
  1. STELARA [Suspect]
     Indication: PSORIASIS
     Route: 058
     Dates: start: 20120627, end: 20130122
  2. MARCOUMAR [Concomitant]
     Indication: ATRIAL FIBRILLATION
     Dates: start: 20110711
  3. TRIAMCINOLONE [Concomitant]
     Route: 061
  4. SALSYVASE [Concomitant]
     Dosage: 5%
     Route: 061
  5. ALL OTHER THERAPEUTIC AGENTS [Concomitant]
     Dosage: 10%
     Route: 061
  6. BETNOVATE [Concomitant]
     Route: 061
  7. CLARELUX [Concomitant]
     Dosage: 2-3 TIMES PER WEEK
  8. ALL OTHER THERAPEUTIC AGENTS [Concomitant]
     Dosage: 23 TIMES PER WEEK
  9. TRAMADOLOR [Concomitant]

REACTIONS (11)
  - Musculoskeletal pain [Unknown]
  - Dizziness [Recovered/Resolved]
  - Septic shock [Fatal]
  - Joint dislocation [Unknown]
  - Megacolon [Unknown]
  - Intra-abdominal haemorrhage [Fatal]
  - Fall [Fatal]
  - Pneumonia aspiration [Unknown]
  - Large intestinal obstruction [Not Recovered/Not Resolved]
  - Cardiomyopathy [Unknown]
  - Hypotension [Unknown]
